FAERS Safety Report 8860505 (Version 3)
Quarter: 2012Q4

REPORT INFORMATION
  Report Type: Report from Study
  Country: US (occurrence: US)
  Receive Date: 20121025
  Receipt Date: 20121111
  Transmission Date: 20130627
  Serious: Yes (Hospitalization)
  Sender: FDA-Public Use
  Company Number: PHHO2012US015196

PATIENT
  Age: 66 Year
  Sex: Male
  Weight: 95.15 kg

DRUGS (10)
  1. AFINITOR [Suspect]
     Indication: INTRACRANIAL MENINGIOMA MALIGNANT
     Dosage: 10 mg, UNK
     Route: 048
     Dates: start: 20101222
  2. AVASTIN [Suspect]
     Indication: INTRACRANIAL MENINGIOMA MALIGNANT
     Dosage: 924 mg, UNK
     Route: 042
     Dates: start: 20101222
  3. KEPPRA [Concomitant]
     Indication: CONVULSION
     Dosage: 250 mg, UNK
     Dates: start: 20120813, end: 20121018
  4. KEPPRA [Concomitant]
     Dosage: 500 mg, BID
     Dates: start: 20120813, end: 20121018
  5. AMBIEN [Concomitant]
     Indication: INSOMNIA
     Dosage: 6.25 mg, UNK
     Dates: start: 20120302
  6. ASPIRIN [Concomitant]
     Indication: CARDIOVASCULAR EVENT PROPHYLAXIS
     Dosage: UNK
     Dates: start: 20070101
  7. VYTORIN [Concomitant]
     Indication: HYPERCHOLESTEROLAEMIA
     Dosage: 1 DF, QD (10/40 mg QD)
     Dates: start: 20070101
  8. LOSARTAN [Concomitant]
     Indication: HYPERTENSION
     Dosage: 1 DF, QD (100/25, mg QD)
     Dates: start: 20070101
  9. GLUCOSAMINE [Concomitant]
     Indication: SUPPLEMENTATION THERAPY
     Dosage: 1 DF, QD (1500/1200 QD)
     Dates: start: 20111201
  10. VITAMIN B COMPLEX [Concomitant]
     Indication: SUPPLEMENTATION THERAPY
     Dosage: 1 DF, UNK
     Dates: start: 20111201

REACTIONS (1)
  - Epilepsy [Recovered/Resolved]
